FAERS Safety Report 6123292-X (Version None)
Quarter: 2009Q1

REPORT INFORMATION
  Report Type: 
  Country: None (occurrence: None)
  Receive Date: 20090318
  Receipt Date: 20090304
  Transmission Date: 20090719
  Serious: Yes (Hospitalization)
  Sender: FDA-Public Use
  Company Number: PL-ROCHE-618590

PATIENT
  Sex: Female
  Weight: 72 kg

DRUGS (7)
  1. CAPECITABINE [Suspect]
     Indication: BREAST CANCER
     Dosage: FREQUENCY REPORTED AS 1150 MG TWICE DAILY, DAY 1-14 EVERY 3 WEEKS.
     Route: 048
     Dates: start: 20081002, end: 20090126
  2. SUNITINIB [Suspect]
     Indication: BREAST CANCER
     Route: 048
     Dates: start: 20080711, end: 20090202
  3. METOCARD [Concomitant]
     Dates: start: 20090202
  4. LACIPIL [Concomitant]
     Dates: start: 20090202
  5. RAMIPRIL [Concomitant]
     Dates: start: 20090202
  6. SORBIFER DURULES (FERROUS SULFATE) [Concomitant]
     Dates: start: 20090209
  7. NEUPOGEN [Concomitant]
     Dates: start: 20090209, end: 20090209

REACTIONS (1)
  - FACIAL PARESIS [None]
